FAERS Safety Report 18238539 (Version 1)
Quarter: 2020Q3

REPORT INFORMATION
  Report Type: Spontaneous
  Country: US (occurrence: US)
  Receive Date: 20200907
  Receipt Date: 20200907
  Transmission Date: 20201103
  Serious: No
  Sender: FDA-Public Use
  Company Number: US-PFIZER INC-2020344443

PATIENT
  Age: 75 Year
  Sex: Female
  Weight: 83.91 kg

DRUGS (2)
  1. TOVIAZ [Suspect]
     Active Substance: FESOTERODINE FUMARATE
     Indication: URINARY INCONTINENCE
     Dosage: 4 MG, DAILY (4MG ONE TABLET DAILY BY MOUTH)
     Route: 048
  2. TOVIAZ [Suspect]
     Active Substance: FESOTERODINE FUMARATE
     Indication: BLADDER SPASM

REACTIONS (3)
  - Dry mouth [Unknown]
  - Inappropriate schedule of product administration [Unknown]
  - Cystitis [Unknown]
